FAERS Safety Report 24564994 (Version 1)
Quarter: 2024Q4

REPORT INFORMATION
  Report Type: Other
  Country: SA (occurrence: SA)
  Receive Date: 20241030
  Receipt Date: 20241030
  Transmission Date: 20250114
  Serious: Yes (Hospitalization, Other)
  Sender: CAPLIN STERILES LIMITED
  Company Number: SA-Caplin Steriles Limited-2164101

PATIENT
  Age: 62 Year
  Sex: Male

DRUGS (5)
  1. GLYCOPYRROLATE [Suspect]
     Active Substance: GLYCOPYRROLATE
     Indication: Dysphagia
  2. GLYCOPYRROLATE [Suspect]
     Active Substance: GLYCOPYRROLATE
     Indication: Increased bronchial secretion
  3. SENNOSIDE A [Concomitant]
     Active Substance: SENNOSIDE A
  4. METOCLOPRAMIDE [Concomitant]
     Active Substance: METOCLOPRAMIDE
  5. TRAMADOL [Concomitant]
     Active Substance: TRAMADOL

REACTIONS (2)
  - Face oedema [Recovering/Resolving]
  - Condition aggravated [Recovering/Resolving]
